FAERS Safety Report 7031028-3 (Version None)
Quarter: 2010Q4

REPORT INFORMATION
  Report Type: 
  Country: None (occurrence: None)
  Receive Date: 20101006
  Receipt Date: 20100927
  Transmission Date: 20110411
  Serious: Yes (Hospitalization, Other)
  Sender: FDA-Public Use
  Company Number: GB-PFIZER INC-2010096674

PATIENT
  Age: 62 Year
  Sex: Female

DRUGS (5)
  1. CYTARABINE [Suspect]
     Indication: CENTRAL NERVOUS SYSTEM LYMPHOMA
  2. METHOTREXATE SODIUM [Suspect]
     Indication: CENTRAL NERVOUS SYSTEM LYMPHOMA
  3. DOXYCYCLINE HYCLATE [Suspect]
     Indication: SEPSIS
  4. FUSIDIC ACID [Concomitant]
  5. VANCOMYCIN [Concomitant]

REACTIONS (9)
  - CEREBELLAR SYNDROME [None]
  - HYPOMAGNESAEMIA [None]
  - HYPOPHAGIA [None]
  - MULTI-ORGAN FAILURE [None]
  - NAUSEA [None]
  - PANCYTOPENIA [None]
  - SEPSIS [None]
  - VOMITING [None]
  - WERNICKE-KORSAKOFF SYNDROME [None]
